FAERS Safety Report 8323091-4 (Version None)
Quarter: 2012Q2

REPORT INFORMATION
  Report Type: 
  Country: None (occurrence: None)
  Receive Date: 20120430
  Receipt Date: 20120423
  Transmission Date: 20120825
  Serious: Yes (Hospitalization)
  Sender: FDA-Public Use
  Company Number: LB-ABBOTT-12P-093-0929387-00

PATIENT
  Age: 70 Year
  Sex: Female

DRUGS (4)
  1. DEPAKENE [Suspect]
     Route: 042
     Dates: start: 20120413, end: 20120415
  2. DEPAKENE [Suspect]
     Indication: CONVULSION
     Route: 042
     Dates: start: 20120413, end: 20120413
  3. PLAVIX [Concomitant]
     Indication: PRODUCT USED FOR UNKNOWN INDICATION
  4. ASPIRIN [Concomitant]
     Indication: PRODUCT USED FOR UNKNOWN INDICATION

REACTIONS (2)
  - ENCEPHALOPATHY [None]
  - DEPRESSED LEVEL OF CONSCIOUSNESS [None]
